FAERS Safety Report 24633063 (Version 1)
Quarter: 2024Q4

REPORT INFORMATION
  Report Type: Report from Study
  Country: US (occurrence: US)
  Receive Date: 20241118
  Receipt Date: 20241118
  Transmission Date: 20250115
  Serious: Yes (Other)
  Sender: MERCK
  Company Number: US-009507513-2411USA000212

PATIENT
  Sex: Female
  Weight: 52.2 kg

DRUGS (1)
  1. WINREVAIR [Suspect]
     Active Substance: SOTATERCEPT-CSRK
     Indication: Pulmonary hypertension
     Dosage: 0.7 MILLIGRAM/KILOGRAM
     Dates: start: 20240528, end: 20241030

REACTIONS (8)
  - Pulmonary hypertension [Unknown]
  - Drug ineffective [Unknown]
  - Decreased activity [Unknown]
  - Raynaud^s phenomenon [Unknown]
  - Fatigue [Unknown]
  - Brain fog [Unknown]
  - Epistaxis [Unknown]
  - Brain natriuretic peptide increased [Unknown]

NARRATIVE: CASE EVENT DATE: 20240101
